FAERS Safety Report 15131134 (Version 1)
Quarter: 2018Q3

REPORT INFORMATION
  Report Type: Spontaneous
  Country: US (occurrence: US)
  Receive Date: 20180711
  Receipt Date: 20180711
  Transmission Date: 20181010
  Serious: Yes (Other)
  Sender: FDA-Public Use
  Company Number: US-BAYER-2018-127104

PATIENT
  Sex: Female
  Weight: 63.49 kg

DRUGS (2)
  1. ONE A DAY JOLLY RANCH SOUR GUMMIES [Suspect]
     Active Substance: MINERALS\VITAMINS
     Dosage: UNK
     Route: 065
  2. BAYER ASPIRIN [Suspect]
     Active Substance: ASPIRIN
     Dosage: UNK
     Route: 065

REACTIONS (3)
  - Nausea [Unknown]
  - Foreign body in respiratory tract [Unknown]
  - Choking [Unknown]
